FAERS Safety Report 10102124 (Version 2)
Quarter: 2014Q2

REPORT INFORMATION
  Report Type: Spontaneous
  Country: US (occurrence: US)
  Receive Date: 20140424
  Receipt Date: 20140604
  Transmission Date: 20141212
  Serious: No
  Sender: FDA-Public Use
  Company Number: US-009507513-1404USA011286

PATIENT
  Sex: Female

DRUGS (1)
  1. OXYTROL FOR WOMEN [Suspect]
     Indication: PRODUCT USED FOR UNKNOWN INDICATION
     Dosage: UNK, UNKNOWN
     Route: 062

REACTIONS (5)
  - Burning sensation [Recovering/Resolving]
  - Discomfort [Recovering/Resolving]
  - Fungal skin infection [Unknown]
  - Erythema [Recovering/Resolving]
  - Rash [Unknown]
